FAERS Safety Report 5844564-X (Version None)
Quarter: 2008Q3

REPORT INFORMATION
  Report Type: 
  Country: None (occurrence: None)
  Receive Date: 20080814
  Receipt Date: 20080813
  Transmission Date: 20090109
  Serious: Yes (Hospitalization, Disabling)
  Sender: FDA-Public Use
  Company Number: PHHO2000SE00567

PATIENT
  Sex: Female
  Weight: 78 kg

DRUGS (4)
  1. EXELON [Suspect]
     Dosage: 0.5-6.0 MG, BID
     Route: 048
     Dates: start: 19991013, end: 20000208
  2. LEVOTHYROXINE SODIUM [Concomitant]
  3. CALCIUM (CALCIUM) [Concomitant]
  4. DYGRATYL (DIHYDROTACHYSTEROL) [Concomitant]

REACTIONS (1)
  - GRAND MAL CONVULSION [None]
